FAERS Safety Report 4678159-0 (Version None)
Quarter: 2005Q2

REPORT INFORMATION
  Report Type: 
  Country: None (occurrence: None)
  Receive Date: 20050527
  Receipt Date: 20050518
  Transmission Date: 20051028
  Serious: Yes (Other)
  Sender: FDA-Public Use
  Company Number: 2005078236

PATIENT
  Age: 31 Year
  Sex: Female

DRUGS (4)
  1. GABAPENTIN [Suspect]
     Indication: ILL-DEFINED DISORDER
     Dosage: 1200 MG (1 IN 1 D)
  2. EPILIM (VALPROATE SODIUM) [Suspect]
     Indication: EPILEPSY
     Dosage: 800 MG (1 IN 1 D), ORAL
     Route: 048
  3. METFORMIN HCL [Concomitant]
  4. GLICLAZIDE (GLICLAZIDE) [Concomitant]

REACTIONS (1)
  - GINGIVAL HYPERPLASIA [None]
